FAERS Safety Report 5742703-2 (Version None)
Quarter: 2008Q2

REPORT INFORMATION
  Report Type: 
  Country: None (occurrence: None)
  Receive Date: 20080519
  Receipt Date: 20080509
  Transmission Date: 20081010
  Serious: Yes (Hospitalization)
  Sender: FDA-Public Use
  Company Number: B0361617A

PATIENT
  Age: 40 Year
  Sex: Female

DRUGS (9)
  1. PAROXETINE HCL [Suspect]
     Indication: DEPRESSION
     Route: 065
     Dates: start: 19981112
  2. ALCOHOL [Concomitant]
  3. STELAZINE [Concomitant]
     Dates: start: 20030616
  4. HORMONE REPLACEMENT THERAPY [Concomitant]
     Dates: end: 20050101
  5. FLUOXETINE [Concomitant]
     Dates: start: 20050901
  6. CITALOPRAM HYDROBROMIDE [Concomitant]
     Dates: start: 20050901
  7. LOFEPRAMINE [Concomitant]
     Dates: start: 20050901
  8. ZYBAN [Concomitant]
     Dates: start: 20071001
  9. NICOTINE [Concomitant]
     Indication: THERAPEUTIC PROCEDURE

REACTIONS (33)
  - ABNORMAL DREAMS [None]
  - AFFECTIVE DISORDER [None]
  - AGITATION [None]
  - ANHEDONIA [None]
  - ANXIETY [None]
  - ASTHENIA [None]
  - BALANCE DISORDER [None]
  - CONFUSIONAL STATE [None]
  - DEPRESSED MOOD [None]
  - DEPRESSION [None]
  - DIZZINESS [None]
  - DRY MOUTH [None]
  - DYSPNOEA [None]
  - EYE SWELLING [None]
  - FATIGUE [None]
  - FEELING ABNORMAL [None]
  - INSOMNIA [None]
  - LIBIDO DECREASED [None]
  - MOOD SWINGS [None]
  - NAUSEA [None]
  - PANIC ATTACK [None]
  - PARAESTHESIA [None]
  - PHOTOSENSITIVITY REACTION [None]
  - RESTLESSNESS [None]
  - SELF-INJURIOUS IDEATION [None]
  - SLEEP DISORDER [None]
  - SUICIDAL IDEATION [None]
  - SWELLING FACE [None]
  - TEARFULNESS [None]
  - TREATMENT NONCOMPLIANCE [None]
  - TREMOR [None]
  - VOMITING [None]
  - WITHDRAWAL SYNDROME [None]
